FAERS Safety Report 24041387 (Version 1)
Quarter: 2024Q3

REPORT INFORMATION
  Report Type: Spontaneous
  Country: US (occurrence: US)
  Receive Date: 20240702
  Receipt Date: 20240702
  Transmission Date: 20241016
  Serious: No
  Sender: SAREPTA THERAPEUTICS
  Company Number: US-SAREPTA THERAPEUTICS INC.-SRP2023-003698

PATIENT
  Sex: Male
  Weight: 135.3 kg

DRUGS (10)
  1. EXONDYS 51 [Suspect]
     Active Substance: ETEPLIRSEN
     Indication: Duchenne muscular dystrophy
     Dosage: 4100 MILLIGRAM, WEEKLY
     Route: 042
     Dates: start: 20171102, end: 20230803
  2. PREDNISONE [Concomitant]
     Active Substance: PREDNISONE
     Indication: Product used for unknown indication
     Dosage: 200 MILLIGRAM, TWICE WEEKLY TAKE ON SATURDAY + SUNDAY
     Route: 048
     Dates: start: 20171102
  3. COREG [Concomitant]
     Active Substance: CARVEDILOL
     Indication: Product used for unknown indication
     Dosage: 25 MILLIGRAM, BID
     Route: 048
     Dates: start: 20181211
  4. EPLERENONE [Concomitant]
     Active Substance: EPLERENONE
     Indication: Product used for unknown indication
     Dosage: 50 MILLIGRAM, QD (AT BEDTIME)
     Route: 048
     Dates: start: 20171102
  5. IBUPROFEN [Concomitant]
     Active Substance: IBUPROFEN
     Indication: Product used for unknown indication
     Dosage: 600 MILLIGRAM, BID
     Route: 048
     Dates: start: 20171102
  6. CALCIUM\VITAMIN D [Concomitant]
     Active Substance: CALCIUM\VITAMIN D
     Indication: Product used for unknown indication
     Dosage: 315-200, TWICE DAILY
     Route: 048
     Dates: start: 20171102
  7. LIDOCAINE AND PRILOCAINE [Concomitant]
     Active Substance: LIDOCAINE\PRILOCAINE
     Indication: Product used for unknown indication
     Dosage: 2.5-2.5 PERCENT AS NEEDED
     Route: 061
     Dates: start: 20171102
  8. CLARITIN-D NOS [Concomitant]
     Active Substance: LORATADINE\PSEUDOEPHEDRINE SULFATE
     Indication: Product used for unknown indication
     Dosage: 10 MILLIGRAM, QD, PRN
     Route: 048
     Dates: start: 20180517
  9. ALBUTEROL SULFATE [Concomitant]
     Active Substance: ALBUTEROL SULFATE
     Indication: Product used for unknown indication
     Dosage: 2.5 MG/ 3 ML, NEBULIZER EVERY 3-4H, PRN
     Dates: start: 20180517
  10. ACETAMINOPHEN [Concomitant]
     Active Substance: ACETAMINOPHEN
     Indication: Product used for unknown indication
     Dosage: 325 MILLIGRAM, BID
     Route: 048
     Dates: start: 20191021

REACTIONS (1)
  - Catheter site pain [Unknown]
